FAERS Safety Report 4611491-5 (Version None)
Quarter: 2005Q2

REPORT INFORMATION
  Report Type: 
  Country: None (occurrence: None)
  Receive Date: 20050311
  Receipt Date: 20041122
  Transmission Date: 20051028
  Serious: No
  Sender: FDA-Public Use
  Company Number: 2004-BP-09761BP

PATIENT
  Age: 70 Year
  Sex: Male

DRUGS (8)
  1. SPIRIVA [Suspect]
     Indication: CHRONIC OBSTRUCTIVE PULMONARY DISEASE
     Dosage: 18 MCG (18 MCG), IH
     Route: 055
     Dates: start: 20040701
  2. SPIRIVA [Suspect]
     Indication: CHRONIC OBSTRUCTIVE PULMONARY DISEASE
     Dosage: 18 MCG (18 MCG), IH
     Route: 055
     Dates: start: 20040701
  3. HYDROCLOROTHIAZIDE (HYDROCHLOROTHIAZIDE) [Concomitant]
  4. COZAAR [Concomitant]
  5. MULTIVITAMIN [Concomitant]
  6. ALBUTEROL [Concomitant]
  7. WATER PILL [Concomitant]
  8. ASPIRIN [Concomitant]

REACTIONS (1)
  - DRY MOUTH [None]
